FAERS Safety Report 9271845 (Version 1)
Quarter: 2013Q2

REPORT INFORMATION
  Report Type: Spontaneous
  Country: US (occurrence: US)
  Receive Date: 20130506
  Receipt Date: 20130506
  Transmission Date: 20140414
  Serious: Yes (Other)
  Sender: FDA-Public Use
  Company Number: US-JNJFOC-20130415224

PATIENT
  Age: 73 Year
  Sex: Male

DRUGS (1)
  1. GALANTAMINE [Suspect]
     Indication: FRONTOTEMPORAL DEMENTIA
     Route: 065

REACTIONS (2)
  - Frontotemporal dementia [Unknown]
  - Abnormal behaviour [Unknown]
